FAERS Safety Report 9255541 (Version 1)
Quarter: 2013Q2

REPORT INFORMATION
  Report Type: Spontaneous
  Country: US (occurrence: US)
  Receive Date: 20130425
  Receipt Date: 20130425
  Transmission Date: 20140414
  Serious: No
  Sender: FDA-Public Use
  Company Number: US-009507513-1304USA007700

PATIENT
  Age: 56 Year
  Sex: Male

DRUGS (2)
  1. ISENTRESS [Suspect]
     Indication: HIV INFECTION
     Dosage: 400 MG, UNK
     Route: 048
     Dates: start: 201301, end: 201302
  2. TRUVADA [Concomitant]

REACTIONS (1)
  - Rash [Recovered/Resolved]
